FAERS Safety Report 6153278-0 (Version None)
Quarter: 2009Q2

REPORT INFORMATION
  Report Type: 
  Country: None (occurrence: None)
  Receive Date: 20090413
  Receipt Date: 20090327
  Transmission Date: 20091009
  Serious: Yes (Other)
  Sender: FDA-Public Use
  Company Number: PHHY2009DK11850

PATIENT
  Sex: Female

DRUGS (4)
  1. OXCARBAZEPINE [Suspect]
     Indication: EPILEPSY
     Dosage: 2100 MG/DAY
  2. OXCARBAZEPINE [Suspect]
     Dosage: 2220 MG/DAY
  3. OXCARBAZEPINE [Suspect]
     Dosage: 2800 MG/DAY
  4. OXCARBAZEPINE [Suspect]
     Dosage: 3000 MG/DAY

REACTIONS (8)
  - ANTICONVULSANT DRUG LEVEL DECREASED [None]
  - CONVULSION [None]
  - DIZZINESS [None]
  - DRUG EXPOSURE DURING PREGNANCY [None]
  - FATIGUE [None]
  - HEADACHE [None]
  - SIMPLE PARTIAL SEIZURES [None]
  - VISION BLURRED [None]
